FAERS Safety Report 7327308-4 (Version None)
Quarter: 2011Q1

REPORT INFORMATION
  Report Type: 
  Country: None (occurrence: None)
  Receive Date: 20110302
  Receipt Date: 20110224
  Transmission Date: 20110831
  Serious: Yes (Other)
  Sender: FDA-Public Use
  Company Number: US-AMGEN-USASP2011011238

PATIENT
  Sex: Male

DRUGS (23)
  1. ALBUTEROL [Concomitant]
  2. FLUNISOLIDE [Concomitant]
  3. TRAZODONE HCL [Concomitant]
  4. DEXAMETHASONE [Concomitant]
  5. HYDROCODONE BITARTRATE [Concomitant]
  6. DOCUSATE SODIUM [Concomitant]
  7. IPRATROPIUM BROMIDE [Concomitant]
  8. VALACICLOVIR [Concomitant]
  9. CYANOCOBALAMIN [Concomitant]
  10. OMEPRAZOLE [Concomitant]
  11. PHENYLEPHRINE HCL [Concomitant]
  12. VENLAFAXINE HYDROCHLORIDE [Concomitant]
  13. CORTICOSTEROIDS [Concomitant]
     Dosage: UNK
  14. ISOSORBIDE DINITRATE [Concomitant]
  15. MOMETASONE FUROATE [Concomitant]
  16. NPLATE [Suspect]
     Indication: IDIOPATHIC THROMBOCYTOPENIC PURPURA
     Dosage: 65 A?G, QWK
     Dates: start: 20110209, end: 20110216
  17. ATENOLOL [Concomitant]
  18. PROPRANOLOL HYDROCHLORIDE [Concomitant]
  19. ASPIRIN [Concomitant]
     Dosage: UNK
  20. IMMUNOGLOBULINS [Concomitant]
  21. AMITRIPTYLINE HCL [Concomitant]
  22. FINASTERIDE [Concomitant]
  23. FLUTICASONE [Concomitant]

REACTIONS (4)
  - NAUSEA [None]
  - BLOOD IRON DECREASED [None]
  - FATIGUE [None]
  - ANGINA PECTORIS [None]
